FAERS Safety Report 7264697-3 (Version None)
Quarter: 2011Q1

REPORT INFORMATION
  Report Type: 
  Country: None (occurrence: None)
  Receive Date: 20110131
  Receipt Date: 20110128
  Transmission Date: 20110831
  Serious: No
  Sender: FDA-Public Use
  Company Number: US-PFIZER INC-2011020963

PATIENT
  Sex: Female

DRUGS (4)
  1. LIPITOR [Suspect]
     Dosage: UNK
     Route: 048
  2. SERTRALINE HYDROCHLORIDE [Suspect]
     Indication: BINGE EATING
     Dosage: 25 MG HALF A TABLET
     Route: 048
     Dates: start: 20110101
  3. SERTRALINE HYDROCHLORIDE [Suspect]
     Dosage: 25 MG, UNK
     Dates: start: 20110101
  4. PAXIL [Suspect]
     Dosage: UNK

REACTIONS (6)
  - TACHYPHRENIA [None]
  - HEADACHE [None]
  - WITHDRAWAL SYNDROME [None]
  - HEPATIC ENZYME INCREASED [None]
  - ANXIETY [None]
  - NAUSEA [None]
